FAERS Safety Report 4314831-X (Version None)
Quarter: 2004Q1

REPORT INFORMATION
  Report Type: 
  Country: None (occurrence: None)
  Receive Date: 20040310
  Receipt Date: 20030616
  Transmission Date: 20041129
  Serious: Yes (Hospitalization)
  Sender: FDA-Public Use
  Company Number: FR-BRISTOL-MYERS SQUIBB COMPANY-12302592

PATIENT
  Age: 65 Year
  Sex: Male
  Weight: 78 kg

DRUGS (9)
  1. APROVEL [Interacting]
     Route: 048
     Dates: start: 20030210
  2. NOVONORM [Interacting]
     Route: 048
     Dates: end: 20030402
  3. LIPUR [Suspect]
     Route: 048
     Dates: start: 20030115
  4. HYPERIUM [Concomitant]
  5. DYSALFA [Concomitant]
  6. UN-ALFA [Concomitant]
     Dosage: DOSE: 0.25UG
     Dates: start: 20030210
  7. CHRONADALATE [Concomitant]
     Indication: ESSENTIAL HYPERTENSION
  8. ALLOPURINOL [Concomitant]
  9. ASPIRIN [Concomitant]

REACTIONS (8)
  - APHASIA [None]
  - BLOOD PRESSURE INCREASED [None]
  - DRUG INTERACTION [None]
  - FACIAL PALSY [None]
  - HEART RATE INCREASED [None]
  - HYPOGLYCAEMIC COMA [None]
  - NERVOUS SYSTEM DISORDER [None]
  - RENAL FAILURE [None]
